FAERS Safety Report 18999390 (Version 1)
Quarter: 2021Q1

REPORT INFORMATION
  Report Type: Spontaneous
  Country: US (occurrence: US)
  Receive Date: 20210312
  Receipt Date: 20210312
  Transmission Date: 20210420
  Serious: No
  Sender: FDA-Public Use
  Company Number: US-SA-2021SA081574

PATIENT
  Age: 61 Year
  Sex: Female

DRUGS (23)
  1. AUBAGIO [Suspect]
     Active Substance: TERIFLUNOMIDE
     Indication: MULTIPLE SCLEROSIS
     Dosage: 14 MG, QD
     Route: 048
  2. CALCIUM [Concomitant]
     Active Substance: CALCIUM
  3. METFORMIN [Concomitant]
     Active Substance: METFORMIN HYDROCHLORIDE
  4. LANTUS [Concomitant]
     Active Substance: INSULIN GLARGINE
  5. AMITRIPTYLINE [Concomitant]
     Active Substance: AMITRIPTYLINE
  6. TIZANIDINE. [Concomitant]
     Active Substance: TIZANIDINE
  7. VITAMIN D NOS [Concomitant]
     Active Substance: VITAMIN D NOS
  8. FISH OIL [Concomitant]
     Active Substance: FISH OIL
  9. BACLOFEN. [Concomitant]
     Active Substance: BACLOFEN
  10. OMEPRAZOLE. [Concomitant]
     Active Substance: OMEPRAZOLE
  11. FARXIGA [Concomitant]
     Active Substance: DAPAGLIFLOZIN PROPANEDIOL
  12. LYRICA [Concomitant]
     Active Substance: PREGABALIN
  13. CARVEDILOL. [Concomitant]
     Active Substance: CARVEDILOL
  14. HYDROCODONE TARTRATE [Concomitant]
     Dosage: UNK UNK, QD
  15. LEVOTHYROXINE. [Concomitant]
     Active Substance: LEVOTHYROXINE
  16. LISINOPRIL AND HYDROCHLORTIAZIDE [Concomitant]
     Active Substance: HYDROCHLOROTHIAZIDE\LISINOPRIL
  17. TYLENOL [Concomitant]
     Active Substance: ACETAMINOPHEN
  18. MYRBETRIQ [Concomitant]
     Active Substance: MIRABEGRON
  19. VASCEPA [Concomitant]
     Active Substance: ICOSAPENT ETHYL
  20. ROSUVASTATIN. [Concomitant]
     Active Substance: ROSUVASTATIN
  21. CLOPIDOGREL [Concomitant]
     Active Substance: CLOPIDOGREL BISULFATE
  22. VITAMIN B12 [VITAMIN B12 NOS] [Concomitant]
     Active Substance: CYANOCOBALAMIN
  23. TRULICITY [Concomitant]
     Active Substance: DULAGLUTIDE

REACTIONS (1)
  - Foot operation [Unknown]
